FAERS Safety Report 5601487-9 (Version None)
Quarter: 2008Q1

REPORT INFORMATION
  Report Type: 
  Country: None (occurrence: None)
  Receive Date: 20080124
  Receipt Date: 20080115
  Transmission Date: 20080703
  Serious: Yes (Hospitalization)
  Sender: FDA-Public Use
  Company Number: US-AVENTIS-200810300US

PATIENT
  Sex: Male
  Weight: 137 kg

DRUGS (15)
  1. LANTUS [Suspect]
     Route: 051
  2. LANTUS [Suspect]
     Dosage: DOSE: 85 UNITS DECREASED TO 65 U
     Route: 051
  3. LANTUS [Suspect]
     Dosage: DOSE: 20 UNITS GRADUALLY INCREASED TO 85 U
     Route: 051
     Dates: start: 20060301
  4. OPTICLIK (INSULIN INJECTION PEN) [Suspect]
     Dates: start: 20060301
  5. THERAGRAN-M [Concomitant]
     Dosage: DOSE: UNK
  6. METFORMIN HCL [Concomitant]
     Route: 048
  7. TRIAMTERENE AND HYDROCHLOROTHIAZIDE [Concomitant]
     Dosage: DOSE: 75/50
     Route: 048
  8. TOPROL-XL [Concomitant]
     Dosage: DOSE: UNK
     Route: 048
  9. CRESTOR [Concomitant]
     Dosage: DOSE: UNK
     Route: 048
  10. IRON [Concomitant]
     Dosage: DOSE: UNK
     Route: 048
  11. LISINOPRIL [Concomitant]
     Dosage: DOSE: UNK
     Route: 048
  12. FUROSEMIDE [Concomitant]
  13. ASPIRIN [Concomitant]
     Route: 048
  14. DILTIAZEM HCL [Concomitant]
     Route: 048
  15. ASTELIN                            /00884002/ [Concomitant]
     Dosage: DOSE: UNK

REACTIONS (9)
  - BLOOD GLUCOSE DECREASED [None]
  - BLOOD GLUCOSE INCREASED [None]
  - COLD SWEAT [None]
  - DEHYDRATION [None]
  - GLYCOSYLATED HAEMOGLOBIN INCREASED [None]
  - HYPERHIDROSIS [None]
  - PAIN IN EXTREMITY [None]
  - SYNCOPE VASOVAGAL [None]
  - VISION BLURRED [None]
